FAERS Safety Report 8783509 (Version 1)
Quarter: 2012Q4

REPORT INFORMATION
  Report Type: Report from Study
  Country: US (occurrence: US)
  Receive Date: 20120913
  Receipt Date: 20120913
  Transmission Date: 20130627
  Serious: No
  Sender: FDA-Public Use
  Company Number: US-VERTEX PHARMACEUTICAL INC.-AE-2012-008598

PATIENT
  Age: 52 Year
  Sex: Female
  Weight: 57.73 kg

DRUGS (6)
  1. INCIVEK [Suspect]
     Indication: HEPATITIS C
     Route: 048
  2. PEGASYS [Concomitant]
     Indication: HEPATITIS C
  3. RIBAVIRIN [Concomitant]
     Indication: HEPATITIS C
  4. ADVIL [Concomitant]
  5. VITAMIN D [Concomitant]
  6. IRON TAB [Concomitant]

REACTIONS (3)
  - Dry mouth [Unknown]
  - Fatigue [Unknown]
  - Pruritus [Unknown]
